FAERS Safety Report 17019799 (Version 1)
Quarter: 2019Q4

REPORT INFORMATION
  Report Type: Report from Study
  Country: US (occurrence: US)
  Receive Date: 20191112
  Receipt Date: 20191112
  Transmission Date: 20200122
  Serious: Yes (Hospitalization)
  Sender: FDA-Public Use
  Company Number: US-BTG-201900206

PATIENT
  Age: 36 Year
  Sex: Male

DRUGS (4)
  1. CROFAB [Suspect]
     Active Substance: CROTALIDAE POLYVALENT IMMUNE FAB (OVINE)
     Indication: SNAKE BITE
     Dosage: 4 VIALS
     Route: 065
  2. OPIOID [Suspect]
     Active Substance: UNSPECIFIED INGREDIENT
     Indication: PRODUCT USED FOR UNKNOWN INDICATION
     Dosage: UNKNOWN
     Route: 065
  3. ANTIVENOM [Suspect]
     Active Substance: UNSPECIFIED INGREDIENT
     Indication: SNAKE BITE
     Dosage: UNSPECIFIED NUMBER OF VIALS
     Route: 065
  4. CROFAB [Suspect]
     Active Substance: CROTALIDAE POLYVALENT IMMUNE FAB (OVINE)
     Indication: SNAKE BITE
     Dosage: 6 VIALS
     Route: 065

REACTIONS (4)
  - Peripheral swelling [Unknown]
  - Thrombocytopenia [Unknown]
  - Prothrombin time prolonged [Unknown]
  - Platelet count decreased [Unknown]
